FAERS Safety Report 10130647 (Version 3)
Quarter: 2014Q2

REPORT INFORMATION
  Report Type: Spontaneous
  Country: US (occurrence: US)
  Receive Date: 20140428
  Receipt Date: 20140612
  Transmission Date: 20141212
  Serious: No
  Sender: FDA-Public Use
  Company Number: US-PFIZER INC-2014116698

PATIENT
  Age: 35 Year
  Sex: Female
  Weight: 52.2 kg

DRUGS (2)
  1. EFFEXOR [Suspect]
     Indication: DEPRESSION
     Dosage: 150 MG, 1X/DAY
  2. EFFEXOR [Suspect]
     Indication: ANXIETY

REACTIONS (1)
  - Malaise [Unknown]
